FAERS Safety Report 17423212 (Version 1)
Quarter: 2020Q1

REPORT INFORMATION
  Report Type: Spontaneous
  Country: US (occurrence: US)
  Receive Date: 20200131
  Receipt Date: 20200131
  Transmission Date: 20200409
  Serious: Yes (Life-Threatening)
  Sender: FDA-Public Use
  Company Number: None

PATIENT
  Sex: Female

DRUGS (10)
  1. AZITHROMYCIN ANHYDROUS. [Concomitant]
     Active Substance: AZITHROMYCIN ANHYDROUS
  2. FLUTICASONE. [Concomitant]
     Active Substance: FLUTICASONE
  3. BENZONATATE. [Concomitant]
     Active Substance: BENZONATATE
  4. BUDESONIDE. [Concomitant]
     Active Substance: BUDESONIDE
  5. DEXILANT [Concomitant]
     Active Substance: DEXLANSOPRAZOLE
  6. OCALIVA [Suspect]
     Active Substance: OBETICHOLIC ACID
     Indication: PRIMARY BILIARY CHOLANGITIS
     Route: 048
     Dates: start: 20200103
  7. RALOXIFENE. [Concomitant]
     Active Substance: RALOXIFENE
  8. FEROSUL [Concomitant]
     Active Substance: FERROUS SULFATE
  9. ROPINIROLE. [Concomitant]
     Active Substance: ROPINIROLE
  10. URSODIOL. [Concomitant]
     Active Substance: URSODIOL

REACTIONS (1)
  - Fatigue [None]
